FAERS Safety Report 15288002 (Version 2)
Quarter: 2018Q3

REPORT INFORMATION
  Report Type: Spontaneous
  Country: US (occurrence: US)
  Receive Date: 20180817
  Receipt Date: 20180820
  Transmission Date: 20181010
  Serious: No
  Sender: FDA-Public Use
  Company Number: US-PFIZER INC-2018329282

PATIENT
  Sex: Female

DRUGS (1)
  1. IBRANCE [Suspect]
     Active Substance: PALBOCICLIB
     Dosage: UNK (TAKEN AFTER FOOD)

REACTIONS (4)
  - Tongue disorder [Unknown]
  - Abdominal discomfort [Unknown]
  - Foreign body in gastrointestinal tract [Unknown]
  - Oral disorder [Unknown]
